FAERS Safety Report 15256376 (Version 3)
Quarter: 2018Q3

REPORT INFORMATION
  Report Type: Report from Study
  Country: ES (occurrence: ES)
  Receive Date: 20180808
  Receipt Date: 20180911
  Transmission Date: 20181010
  Serious: Yes (Death, Hospitalization)
  Sender: FDA-Public Use
  Company Number: ES-ROCHE-2157401

PATIENT
  Age: 70 Year
  Sex: Male
  Weight: 87.2 kg

DRUGS (43)
  1. ESCITALOPRAM [Concomitant]
     Active Substance: ESCITALOPRAM OXALATE
     Indication: PROPHYLAXIS
     Dosage: FOR AXIOUS?DEPRESSIVE SYNDROME PROPHYLAXIS
     Route: 048
     Dates: start: 20180617
  2. PIROXICAM. [Concomitant]
     Active Substance: PIROXICAM
     Indication: PROPHYLAXIS
     Route: 065
     Dates: start: 20180528
  3. ENOXAPARINA [Concomitant]
     Active Substance: ENOXAPARIN
     Dosage: THROMBOEMBOLISM PROPHYLAXIS
     Route: 058
     Dates: start: 20180717, end: 20180719
  4. PEGPH20 [Suspect]
     Active Substance: PEGVORHYALURONIDASE ALFA
     Indication: PANCREATIC CARCINOMA METASTATIC
     Dosage: MOST RECENT DOSE ON 11/JUN/2018 (300 UNITS NOT REPORTED).
     Route: 042
     Dates: start: 20180528
  5. OMEPRAZOL [Concomitant]
     Active Substance: OMEPRAZOLE
     Indication: PROPHYLAXIS
     Dosage: FOR DYSPEPSIA PROPHYLAXIS
     Route: 065
     Dates: start: 20180622, end: 20180706
  6. INSULINE [Concomitant]
     Active Substance: INSULIN NOS
     Indication: DIABETES MELLITUS
     Dosage: 1 UNIT
     Route: 058
     Dates: start: 20180618, end: 20180706
  7. ENOXAPARIN [Concomitant]
     Active Substance: ENOXAPARIN
     Indication: THROMBOSIS PROPHYLAXIS
     Route: 058
     Dates: start: 20180618, end: 20180706
  8. FUROSEMIDE. [Concomitant]
     Active Substance: FUROSEMIDE
     Indication: HYPERTENSION
     Route: 042
     Dates: start: 20180626, end: 20180628
  9. MYCOPHENOLIC ACID. [Concomitant]
     Active Substance: MYCOPHENOLIC ACID
     Dosage: FOR IMMUNOLOGICAL PROPHYLAXIS
     Route: 048
     Dates: start: 20180702, end: 20180706
  10. CITALOPRAM [Concomitant]
     Active Substance: CITALOPRAM HYDROBROMIDE
     Indication: PROPHYLAXIS
     Dosage: FOR ANXIOUS DEPRESSIVE SYNDROME PROPHYLAXIS
     Route: 048
     Dates: start: 20180618, end: 20180706
  11. TAMSULOSINE [Concomitant]
     Active Substance: TAMSULOSIN HYDROCHLORIDE
     Indication: BENIGN PROSTATIC HYPERPLASIA
     Route: 048
  12. PARACETAMOL [Concomitant]
     Active Substance: ACETAMINOPHEN
     Indication: PAIN PROPHYLAXIS
     Route: 042
     Dates: start: 20180622, end: 20180706
  13. LORAZEPAM. [Concomitant]
     Active Substance: LORAZEPAM
     Indication: DEPRESSION
     Route: 048
     Dates: start: 20180619, end: 20180619
  14. ATORVASTATINE [Concomitant]
     Active Substance: ATORVASTATIN
     Indication: DYSLIPIDAEMIA
     Route: 048
     Dates: start: 20180717, end: 20180802
  15. XIGDUO XR [Concomitant]
     Active Substance: DAPAGLIFLOZIN PROPANEDIOL\METFORMIN HYDROCHLORIDE
     Indication: DIABETES MELLITUS
     Dosage: 5/850
     Route: 048
     Dates: start: 20180617
  16. METFORMIN [Concomitant]
     Active Substance: METFORMIN HYDROCHLORIDE
     Indication: DIABETES MELLITUS
     Route: 048
     Dates: start: 20180618, end: 20180626
  17. FUROSEMIDE. [Concomitant]
     Active Substance: FUROSEMIDE
     Route: 048
     Dates: start: 20180628, end: 20180706
  18. FUROSEMIDE. [Concomitant]
     Active Substance: FUROSEMIDE
     Route: 042
     Dates: start: 20180717, end: 20180801
  19. AMLODIPINE [Concomitant]
     Active Substance: AMLODIPINE BESYLATE
     Indication: HYPERTENSION
     Route: 048
     Dates: start: 20180618, end: 20180706
  20. LOSARTAN. [Concomitant]
     Active Substance: LOSARTAN
     Indication: HYPERTENSION
     Route: 048
     Dates: start: 20180618, end: 20180706
  21. METAMIZOL [Concomitant]
     Active Substance: METAMIZOLE SODIUM
     Indication: PAIN PROPHYLAXIS
     Route: 042
     Dates: start: 20180622, end: 20180706
  22. HUMAN ALBUMINE [Concomitant]
     Route: 042
     Dates: start: 20180719, end: 20180727
  23. SALINE [Concomitant]
     Active Substance: SODIUM CHLORIDE
     Route: 042
     Dates: start: 20180717, end: 20180803
  24. MIDAZOLAM [Concomitant]
     Active Substance: MIDAZOLAM HYDROCHLORIDE
     Route: 042
     Dates: start: 20180802, end: 20180803
  25. MYCOPHENOLATE MOFETIL. [Concomitant]
     Active Substance: MYCOPHENOLATE MOFETIL
     Route: 048
     Dates: start: 20180725, end: 20180803
  26. AMLODIPINE [Concomitant]
     Active Substance: AMLODIPINE BESYLATE
     Route: 048
     Dates: start: 20180717, end: 20180802
  27. IMMUNOGLOBULIN [Concomitant]
     Indication: PROPHYLAXIS
     Dosage: FOR PROPHYLAXIS IMMUNOLOGICAL
     Route: 042
     Dates: start: 20180622, end: 20180706
  28. LORAZEPAM. [Concomitant]
     Active Substance: LORAZEPAM
     Route: 048
     Dates: start: 20180717, end: 20180802
  29. METHYLPREDNISOLONE. [Concomitant]
     Active Substance: METHYLPREDNISOLONE
     Indication: DYSPNOEA
     Route: 042
     Dates: start: 20180717, end: 20180802
  30. IBUPROFEN. [Concomitant]
     Active Substance: IBUPROFEN
     Indication: PAIN PROPHYLAXIS
     Route: 048
     Dates: start: 20180717, end: 20180718
  31. PANTOPRAZOL [Concomitant]
     Active Substance: PANTOPRAZOLE SODIUM
     Indication: PROPHYLAXIS
     Route: 042
     Dates: start: 20180618, end: 20180622
  32. PANTOPRAZOL [Concomitant]
     Active Substance: PANTOPRAZOLE SODIUM
     Route: 042
     Dates: start: 20180717, end: 20180719
  33. OMEPRAZOL [Concomitant]
     Active Substance: OMEPRAZOLE
     Route: 048
     Dates: start: 20180719, end: 20180725
  34. COTRIMOXAZOLE [Concomitant]
     Active Substance: SULFAMETHOXAZOLE\TRIMETHOPRIM
     Indication: INFECTION PROPHYLAXIS
     Dosage: 160/800
     Route: 042
     Dates: start: 20180625, end: 20180628
  35. COTRIMOXAZOLE [Concomitant]
     Active Substance: SULFAMETHOXAZOLE\TRIMETHOPRIM
     Dosage: 160/800
     Route: 048
     Dates: start: 20180628, end: 20180706
  36. DEXKETOPROFEN [Concomitant]
     Active Substance: DEXKETOPROFEN
     Indication: PAIN PROPHYLAXIS
     Route: 042
     Dates: start: 20180717, end: 20180803
  37. ATEZOLIZUMAB. [Suspect]
     Active Substance: ATEZOLIZUMAB
     Indication: PANCREATIC CARCINOMA METASTATIC
     Dosage: MOST RECENT DOSE OF ATEZOLIZUMAB PRIOR TO THE ONSET OF WORSENING MYATHENIA GRAVIS: 28/MAY/2018 (1200
     Route: 042
     Dates: start: 20180528
  38. ENOXAPARIN [Concomitant]
     Active Substance: ENOXAPARIN
     Indication: PROPHYLAXIS
     Route: 058
     Dates: start: 20180528
  39. FUROSEMIDE. [Concomitant]
     Active Substance: FUROSEMIDE
     Route: 048
     Dates: start: 20180801, end: 20180802
  40. PARACETAMOL [Concomitant]
     Active Substance: ACETAMINOPHEN
     Route: 048
     Dates: start: 20180717, end: 20180803
  41. MYCOPHENOLATE MOFETIL. [Concomitant]
     Active Substance: MYCOPHENOLATE MOFETIL
     Dosage: IMMUNOMEDIATED EVENTS PROPHYLAXIS
     Route: 048
     Dates: start: 20180718, end: 20180725
  42. SIMVASTATINE [Concomitant]
     Active Substance: SIMVASTATIN
     Indication: DYSLIPIDAEMIA
     Route: 048
     Dates: start: 20180618, end: 20180618
  43. METILPREDNISOLONE [Concomitant]
     Active Substance: METHYLPREDNISOLONE
     Indication: ATRIOVENTRICULAR BLOCK COMPLETE
     Route: 042
     Dates: start: 20180618, end: 20180706

REACTIONS (1)
  - Myositis [Fatal]

NARRATIVE: CASE EVENT DATE: 20180717
